FAERS Safety Report 6404049-9 (Version None)
Quarter: 2009Q4

REPORT INFORMATION
  Report Type: 
  Country: None (occurrence: None)
  Receive Date: 20091016
  Receipt Date: 20090805
  Transmission Date: 20100525
  Serious: Yes (Hospitalization)
  Sender: FDA-Public Use
  Company Number: US-ALEXION-A200900556

PATIENT
  Sex: Female

DRUGS (14)
  1. SOLIRIS [Suspect]
     Indication: PAROXYSMAL NOCTURNAL HAEMOGLOBINURIA
     Dosage: 600 MG, QW
     Route: 042
     Dates: start: 20070710, end: 20070731
  2. SOLIRIS [Suspect]
     Dosage: 900 MG, UNK
     Route: 042
     Dates: start: 20070807
  3. DAPTOMYCIN [Concomitant]
     Route: 042
  4. ZOSYN [Concomitant]
     Route: 042
  5. LOVENOX [Concomitant]
  6. COUMADIN [Concomitant]
  7. PEPCID [Concomitant]
  8. PREDNISONE [Concomitant]
  9. NORVASC [Concomitant]
  10. BENADRYL [Concomitant]
  11. HYDROMORPHONE [Concomitant]
  12. NITROGLYCERIN [Concomitant]
  13. ALBUTEROL [Concomitant]
  14. ADVAIR DISKUS 100/50 [Concomitant]

REACTIONS (6)
  - ANAEMIA [None]
  - DYSPNOEA [None]
  - HAEMOPTYSIS [None]
  - HAEMORRHAGE URINARY TRACT [None]
  - PNEUMONIA [None]
  - UNEVALUABLE EVENT [None]
